FAERS Safety Report 4448876-6 (Version None)
Quarter: 2004Q3

REPORT INFORMATION
  Report Type: 
  Country: None (occurrence: None)
  Receive Date: 20040909
  Receipt Date: 20040827
  Transmission Date: 20050211
  Serious: Yes (Hospitalization, Other)
  Sender: FDA-Public Use
  Company Number: 2004230856US

PATIENT
  Sex: Male
  Weight: 104.3 kg

DRUGS (5)
  1. CELEBREX [Suspect]
     Indication: ARTHRITIS
     Dosage: 200 MG, BID
     Dates: start: 20011201
  2. VICODIN [Concomitant]
  3. FLOMAX [Concomitant]
  4. NEURONTIN [Concomitant]
  5. MIRALAX [Concomitant]

REACTIONS (3)
  - ARTHRALGIA [None]
  - HIP ARTHROPLASTY [None]
  - INFECTION [None]
